FAERS Safety Report 9214577 (Version 2)
Quarter: 2013Q2

REPORT INFORMATION
  Report Type: Spontaneous
  Country: CL (occurrence: CL)
  Receive Date: 20130405
  Receipt Date: 20130412
  Transmission Date: 20140414
  Serious: Yes (Hospitalization, Other)
  Sender: FDA-Public Use
  Company Number: PHHY2013CL032941

PATIENT
  Age: 67 Year
  Sex: Male

DRUGS (7)
  1. GALVUS MET [Suspect]
     Indication: DIABETES MELLITUS
     Dosage: 1 DF, (850/50MG), UKN
     Route: 048
  2. TAREG [Suspect]
     Indication: HYPERTENSION
     Dosage: 80 MG, UNK
     Route: 048
     Dates: start: 201206, end: 201303
  3. NEXIUM//ESOMEPRAZOLE MAGNESIUM [Concomitant]
     Dosage: UNK UKN, QD(AT NIGHT)
     Route: 048
  4. PLAVIX [Concomitant]
     Dosage: UNK UKN, QD
     Route: 048
  5. LOSARTAN [Concomitant]
     Dosage: 0.5 DF(50MG), A DAY
     Route: 048
     Dates: start: 201303
  6. ASPIRIN [Concomitant]
     Dosage: 100 MG, ONCE A DAY
     Route: 048
  7. LIPITOR [Concomitant]
     Dosage: UNK UKN, ONCE A DAY
     Route: 048

REACTIONS (1)
  - Cerebrovascular accident [Recovered/Resolved with Sequelae]
